FAERS Safety Report 19027043 (Version 1)
Quarter: 2021Q1

REPORT INFORMATION
  Report Type: Spontaneous
  Country: DE (occurrence: DE)
  Receive Date: 20210318
  Receipt Date: 20210318
  Transmission Date: 20210420
  Serious: Yes (Life-Threatening, Hospitalization, Other)
  Sender: FDA-Public Use
  Company Number: DE-SA-2021SA091608

PATIENT
  Age: 71 Year
  Sex: Female

DRUGS (14)
  1. MOVICOL [MACROGOL 4000;POTASSIUM CHLORIDE;SODIUM BICARBONATE;SODIUM CH [Concomitant]
     Dosage: 0?1?0?0, SACHETS / GRANULES
  2. METAMIZOL [METAMIZOLE SODIUM] [Concomitant]
     Dosage: 20?20?0?20, DROPS
  3. GLAUPAX [Concomitant]
     Active Substance: ACETAZOLAMIDE
     Dosage: 250 MG, 1?1?1?0, TABLETS
  4. INSULIN LISPRO [Suspect]
     Active Substance: INSULIN LISPRO
     Dosage: UNK
  5. AMLODIPINE [AMLODIPINE MALEATE] [Concomitant]
     Dosage: 5 MG, 1?0?0?1, TABLETS
  6. SIMVASTATIN. [Concomitant]
     Active Substance: SIMVASTATIN
     Dosage: 20 MG, 0?0?0?1, TABLETS
  7. IPRAMOL TEVA [Concomitant]
     Dosage: 0.5 | 0.2 MG, 1?1?1?1, METERED DOSE INHALER
     Route: 055
  8. INSULIN GLARGINE [Suspect]
     Active Substance: INSULIN GLARGINE
     Dosage: 16 IU, ACCORDING TO SCHEDULE,
  9. PANTOPRAZOLE [Concomitant]
     Active Substance: PANTOPRAZOLE
     Dosage: 40 MG, 1?0?0?0, TABLETS
  10. KALINOR [CITRIC ACID;POTASSIUM BICARBONATE;POTASSIUM CITRATE] [Concomitant]
     Active Substance: CITRIC ACID MONOHYDRATE\POTASSIUM BICARBONATE\POTASSIUM CITRATE
     Dosage: 1?1?0?0, EFFERVESCENT TABLETS
  11. FRUSEMID [FUROSEMIDE] [Concomitant]
     Dosage: 125 MG, 1?0.5?0?0, TABLETS
  12. ALLOPURINOL. [Concomitant]
     Active Substance: ALLOPURINOL
     Dosage: 100 MG, 1.5?0?0?0, TABLETS
  13. ACETYLSALICYLIC ACID [Concomitant]
     Active Substance: ASPIRIN
     Dosage: 100 MG, 0?1?0?0, TABLETS
  14. METOPROLOL SALT NOT SPECIFIED [Suspect]
     Active Substance: METOPROLOL
     Dosage: 47.5 MG, BID

REACTIONS (5)
  - Dyspnoea [Unknown]
  - General physical health deterioration [Unknown]
  - Hypoglycaemia [Unknown]
  - Bradycardia [Unknown]
  - Dizziness [Unknown]
